FAERS Safety Report 4879542-0 (Version None)
Quarter: 2006Q1

REPORT INFORMATION
  Report Type: 
  Country: None (occurrence: None)
  Receive Date: 20060111
  Receipt Date: 20051230
  Transmission Date: 20060701
  Serious: Yes (Hospitalization, Other)
  Sender: FDA-Public Use
  Company Number: KII-2005-0020552

PATIENT
  Age: 50 Year
  Sex: Female

DRUGS (8)
  1. OXYCONTIN [Suspect]
     Dosage: ORAL
     Route: 048
  2. CYCLOBENZAPRINE(CYCLOBENZAPRINE) [Suspect]
     Dosage: ORAL
     Route: 048
  3. SSR [Suspect]
     Dosage: ORAL
     Route: 048
  4. GABITRIL [Suspect]
     Dosage: ORAL
     Route: 048
  5. ALPRAZOLAM [Suspect]
     Dosage: ORAL
     Route: 048
  6. CLONAZEPAM [Suspect]
     Dosage: ORAL
     Route: 048
  7. ETODOLAC [Suspect]
     Dosage: ORAL
     Route: 048
  8. HYPNOTICS AND SEDATIVES [Suspect]
     Dosage: ORAL
     Route: 048

REACTIONS (15)
  - ABNORMAL BEHAVIOUR [None]
  - BLOOD BICARBONATE DECREASED [None]
  - BLOOD PRESSURE INCREASED [None]
  - BODY TEMPERATURE INCREASED [None]
  - DIARRHOEA [None]
  - ELECTROCARDIOGRAM QT CORRECTED INTERVAL PROLONGED [None]
  - ELECTROCARDIOGRAM QT PROLONGED [None]
  - HEART RATE INCREASED [None]
  - LETHARGY [None]
  - MULTIPLE DRUG OVERDOSE INTENTIONAL [None]
  - MUSCLE RIGIDITY [None]
  - MUSCLE TWITCHING [None]
  - PUPILLARY REFLEX IMPAIRED [None]
  - RESPIRATORY RATE DECREASED [None]
  - SUICIDE ATTEMPT [None]
